FAERS Safety Report 4393822-7 (Version None)
Quarter: 2004Q3

REPORT INFORMATION
  Report Type: 
  Country: None (occurrence: None)
  Receive Date: 20040707
  Receipt Date: 20011211
  Transmission Date: 20050211
  Serious: Yes (Hospitalization)
  Sender: FDA-Public Use
  Company Number: 24486

PATIENT
  Age: 77 Year
  Sex: Male

DRUGS (7)
  1. FLECAINIDE ACETATE [Suspect]
     Indication: ATRIAL FIBRILLATION
     Dosage: 200 MG
     Route: 048
     Dates: start: 20010723, end: 20011105
  2. MOPTIN-MINI (PROCATEROL HCL) [Concomitant]
  3. EVIPROSTAT [Concomitant]
  4. THEO-DUR [Concomitant]
  5. BAYASPIRIN (ASPIRIN) [Concomitant]
  6. ANPLAG (ZALTOPROFEN) [Concomitant]
  7. SELBEX (TEPRENONE) [Concomitant]

REACTIONS (5)
  - DRUG ERUPTION [None]
  - PNEUMONIA BACTERIAL [None]
  - SKULL FRACTURE [None]
  - TACHYCARDIA [None]
  - TRANSIENT ISCHAEMIC ATTACK [None]
